FAERS Safety Report 8964865 (Version 1)
Quarter: 2012Q4

REPORT INFORMATION
  Report Type: 
  Country: US (occurrence: US)
  Receive Date: 20121213
  Receipt Date: 20121213
  Transmission Date: 20130627
  Serious: Yes (Other)
  Sender: FDA-Public Use
  Company Number: US-US-EMD SERONO, INC.-7180744

PATIENT
  Sex: Male

DRUGS (1)
  1. REBIF [Suspect]
     Indication: MULTIPLE SCLEROSIS
     Route: 058
     Dates: start: 20110407

REACTIONS (5)
  - Optic neuritis [Unknown]
  - Vomiting [Unknown]
  - Multiple sclerosis relapse [Recovering/Resolving]
  - Arthralgia [Unknown]
  - Influenza like illness [Unknown]
